FAERS Safety Report 10034333 (Version 1)
Quarter: 2014Q1

REPORT INFORMATION
  Report Type: Spontaneous
  Country: US (occurrence: None)
  Receive Date: 20140324
  Receipt Date: 20140324
  Transmission Date: 20141002
  Serious: Yes (Other)
  Sender: FDA-Public Use
  Company Number: None

PATIENT
  Age: 46 Year
  Sex: Female
  Weight: 63.5 kg

DRUGS (3)
  1. NITROFURANTOIN MONOHYDRATE [Suspect]
     Indication: URINARY TRACT INFECTION
     Dosage: 1 CAPSULE BID ORAL
     Route: 048
     Dates: start: 20140319, end: 20140319
  2. TAMOXIFEN [Concomitant]
  3. ZOLPIDEM [Concomitant]

REACTIONS (3)
  - Pyrexia [None]
  - Malaise [None]
  - Feeling abnormal [None]
